FAERS Safety Report 7795860-0 (Version None)
Quarter: 2011Q4

REPORT INFORMATION
  Report Type: 
  Country: None (occurrence: None)
  Receive Date: 20111004
  Receipt Date: 20110923
  Transmission Date: 20120403
  Serious: Yes (Other)
  Sender: FDA-Public Use
  Company Number: DE-JNJFOC-20110312240

PATIENT
  Sex: Female
  Weight: 2.09 kg

DRUGS (3)
  1. REMICADE [Suspect]
     Dates: start: 20101220
  2. REMICADE [Suspect]
     Indication: MATERNAL EXPOSURE DURING PREGNANCY
     Dates: start: 20101023
  3. REMICADE [Suspect]
     Dates: start: 20100902

REACTIONS (2)
  - CAESAREAN SECTION [None]
  - SMALL FOR DATES BABY [None]
